FAERS Safety Report 8198291-7 (Version None)
Quarter: 2012Q1

REPORT INFORMATION
  Report Type: 
  Country: None (occurrence: None)
  Receive Date: 20120309
  Receipt Date: 20120306
  Transmission Date: 20120608
  Serious: Yes (Hospitalization, Disabling, Other)
  Sender: FDA-Public Use
  Company Number: US-MERCK-1104USA02655

PATIENT
  Age: 60 Year
  Sex: Female

DRUGS (3)
  1. FOSAMAX [Suspect]
     Route: 048
     Dates: start: 20010101, end: 20060101
  2. FOSAMAX [Suspect]
     Indication: OSTEOPENIA
     Route: 048
     Dates: start: 19960101, end: 20000101
  3. FOSAMAX PLUS D [Suspect]
     Indication: OSTEOPENIA
     Route: 048
     Dates: start: 20060101, end: 20100101

REACTIONS (37)
  - HAEMORRHOIDS [None]
  - URINARY TRACT INFECTION [None]
  - ATROPHIC VULVOVAGINITIS [None]
  - BONE PAIN [None]
  - PAIN IN EXTREMITY [None]
  - OVARIAN DISORDER [None]
  - VITAMIN D DECREASED [None]
  - SCIATICA [None]
  - RHEUMATOID ARTHRITIS [None]
  - BLOOD GLUCOSE INCREASED [None]
  - BRONCHITIS [None]
  - HYPOKALAEMIA [None]
  - FEMUR FRACTURE [None]
  - ADVERSE EVENT [None]
  - ENDOMETRIOSIS [None]
  - SCOLIOSIS [None]
  - FALLOPIAN TUBE DISORDER [None]
  - FIBROCYSTIC BREAST DISEASE [None]
  - RECTAL HAEMORRHAGE [None]
  - MUSCLE STRAIN [None]
  - ANAEMIA [None]
  - COLON ADENOMA [None]
  - TYPE V HYPERLIPIDAEMIA [None]
  - HAEMOGLOBIN DECREASED [None]
  - RIB FRACTURE [None]
  - DERMOID CYST [None]
  - HYPERTENSION [None]
  - GLYCOSYLATED HAEMOGLOBIN INCREASED [None]
  - TONSILLAR DISORDER [None]
  - APPENDICITIS [None]
  - SOFT TISSUE DISORDER [None]
  - DIVERTICULUM [None]
  - OSTEOPENIA [None]
  - VARICOSE VEIN [None]
  - SPINAL OSTEOARTHRITIS [None]
  - BLOOD PRESSURE INCREASED [None]
  - DIVERTICULUM INTESTINAL [None]
